FAERS Safety Report 23678055 (Version 1)
Quarter: 2024Q1

REPORT INFORMATION
  Report Type: Spontaneous
  Country: FI (occurrence: FI)
  Receive Date: 20240327
  Receipt Date: 20240327
  Transmission Date: 20240410
  Serious: Yes (Hospitalization)
  Sender: FDA-Public Use
  Company Number: FI-MYLANLABS-2024M1026721

PATIENT
  Age: 68 Year
  Sex: Male

DRUGS (11)
  1. DEXMEDETOMIDINE [Suspect]
     Active Substance: DEXMEDETOMIDINE
     Indication: Product used for unknown indication
     Dosage: 200 MICROGRAM; 100MCG/ML
     Route: 042
  2. DEXAMETHASONE [Suspect]
     Active Substance: DEXAMETHASONE
     Indication: Product used for unknown indication
     Dosage: 10 MILLIGRAM; 5MG/ML, 2 ML VIAL
     Route: 042
  3. ACETAMINOPHEN [Concomitant]
     Active Substance: ACETAMINOPHEN
     Indication: Premedication
     Dosage: UNK
     Route: 048
  4. PANTOPRAZOLE [Concomitant]
     Active Substance: PANTOPRAZOLE
     Indication: Premedication
     Dosage: UNK
     Route: 048
  5. ETORICOXIB [Concomitant]
     Active Substance: ETORICOXIB
     Indication: Premedication
     Dosage: UNK
     Route: 048
  6. BETAMETHASONE [Concomitant]
     Active Substance: BETAMETHASONE\BETAMETHASONE DIPROPIONATE
     Indication: Premedication
     Dosage: UNK
     Route: 042
  7. ONDANSETRON [Concomitant]
     Active Substance: ONDANSETRON
     Indication: Premedication
     Dosage: UNK
     Route: 042
  8. EPINEPHRINE [Concomitant]
     Active Substance: EPINEPHRINE
     Indication: Local anaesthesia
     Dosage: UNK; LIDOCAINE CUM ADRENALINE 10 MG/ML 10 ML WAS ADMINISTERED  TO SPOTS ON THE SCALP
     Route: 065
  9. LIDOCAINE [Concomitant]
     Active Substance: LIDOCAINE
     Indication: Local anaesthesia
     Dosage: UNK; LIDOCAINE CUM ADRENALINE 10 MG/ML 10 ML WAS ADMINISTERED  TO SPOTS ON THE SCALP
     Route: 065
  10. LIDOCAINE [Concomitant]
     Active Substance: LIDOCAINE
     Dosage: UNK; 15ML LIDOCAINE 10MG/ML WAS ADDED LATER
     Route: 065
  11. ROPIVACAINE [Concomitant]
     Active Substance: ROPIVACAINE
     Indication: Local anaesthesia
     Dosage: UNK; 5 MG/ML 10 ML
     Route: 065

REACTIONS (10)
  - Accidental overdose [Recovered/Resolved]
  - Wrong product administered [Recovered/Resolved]
  - Depressed level of consciousness [Recovered/Resolved]
  - Unresponsive to stimuli [Recovered/Resolved]
  - Apnoea [Recovered/Resolved]
  - Bradycardia [Recovered/Resolved]
  - Hypotension [Recovered/Resolved]
  - Dysarthria [Recovered/Resolved]
  - Somnolence [Recovered/Resolved]
  - Miosis [Recovered/Resolved]
